FAERS Safety Report 23781792 (Version 1)
Quarter: 2024Q2

REPORT INFORMATION
  Report Type: Spontaneous
  Country: US (occurrence: US)
  Receive Date: 20240425
  Receipt Date: 20240425
  Transmission Date: 20240716
  Serious: Yes (Other)
  Sender: FDA-Public Use
  Company Number: US-KOANAAP-SML-US-2024-00319

PATIENT
  Age: 58 Year
  Sex: Female

DRUGS (5)
  1. IRINOTECAN [Suspect]
     Active Substance: IRINOTECAN
     Indication: Adenocarcinoma pancreas
     Dosage: IN A GLUCOSE (DEXTROSE) WATER OF 250 ML WAS THEN INITIATED AT 175 ML/HOUR OVER 90 MINUTES
  2. IRINOTECAN [Suspect]
     Active Substance: IRINOTECAN
     Dosage: 87.5 ML/HOUR OVER 180 MINUTES
  3. OXALIPLATIN [Suspect]
     Active Substance: OXALIPLATIN
     Indication: Adenocarcinoma pancreas
     Dosage: IN A GLUCOSE (DEXTROSE) WATER AT A RATE OF 141 ML/HR OVER 2 HOURS
  4. ATROPINE [Suspect]
     Active Substance: ATROPINE\ATROPINE SULFATE
     Indication: Adenocarcinoma pancreas
     Dosage: IN A GLUCOSE (DEXTROSE) WATER AT A RATE OF 141 ML/HR OVER 2 HOURS
  5. FAMOTIDINE [Suspect]
     Active Substance: FAMOTIDINE
     Indication: Adenocarcinoma pancreas
     Dosage: IN A GLUCOSE (DEXTROSE) WATER AT A RATE OF 141 ML/HR OVER 2 HOURS

REACTIONS (7)
  - Drug interaction [Unknown]
  - Arrhythmia [Recovered/Resolved]
  - Tongue disorder [Recovered/Resolved]
  - Dysarthria [Recovered/Resolved]
  - Headache [Recovered/Resolved]
  - Dizziness [Recovered/Resolved]
  - Dyspnoea [Recovered/Resolved]
